FAERS Safety Report 9835213 (Version 1)
Quarter: 2014Q1

REPORT INFORMATION
  Report Type: Spontaneous
  Country: US (occurrence: US)
  Receive Date: 20140122
  Receipt Date: 20140122
  Transmission Date: 20141002
  Serious: No
  Sender: FDA-Public Use
  Company Number: US-BRISTOL-MYERS SQUIBB COMPANY-19863273

PATIENT
  Sex: Female

DRUGS (7)
  1. ELIQUIS [Suspect]
     Dosage: 2.5MG
     Dates: start: 201306
  2. CARDIZEM [Concomitant]
     Route: 048
  3. DIGOXIN [Concomitant]
     Dosage: 1DF: 0.L25MCG + 0.25MCG
  4. STELAZINE [Concomitant]
  5. TOPROL XL [Concomitant]
  6. SYNTHROID [Concomitant]
  7. ATIVAN [Concomitant]

REACTIONS (6)
  - Nausea [Unknown]
  - Dizziness [Unknown]
  - Haemorrhage urinary tract [Unknown]
  - Presyncope [Unknown]
  - Ear congestion [Unknown]
  - Headache [Unknown]
